FAERS Safety Report 12707476 (Version 1)
Quarter: 2016Q3

REPORT INFORMATION
  Report Type: Spontaneous
  Country: US (occurrence: US)
  Receive Date: 20160901
  Receipt Date: 20160901
  Transmission Date: 20161109
  Serious: Yes (Death)
  Sender: FDA-Public Use
  Company Number: PHEH2016US022063

PATIENT
  Age: 59 Year
  Sex: Female

DRUGS (1)
  1. TYKERB [Suspect]
     Active Substance: LAPATINIB DITOSYLATE
     Indication: DRY SKIN
     Dosage: 750 MG ALT 500 MG
     Route: 048
     Dates: start: 20150107

REACTIONS (2)
  - Death [Fatal]
  - Product use issue [Unknown]

NARRATIVE: CASE EVENT DATE: 20160823
